FAERS Safety Report 11933626 (Version 1)
Quarter: 2016Q1

REPORT INFORMATION
  Report Type: Spontaneous
  Country: None (occurrence: None)
  Receive Date: 20160120
  Receipt Date: 20160120
  Transmission Date: 20160526
  Serious: No
  Sender: FDA-Public Use
  Company Number: None

PATIENT
  Age: 59 Year
  Sex: Male

DRUGS (1)
  1. METOPROLOL SUCC ER 100 MG TAB [Suspect]
     Active Substance: METOPROLOL SUCCINATE
     Dates: start: 20151231

REACTIONS (3)
  - Dizziness [None]
  - Paraesthesia [None]
  - Extrasystoles [None]

NARRATIVE: CASE EVENT DATE: 20160117
